FAERS Safety Report 9200379 (Version 3)
Quarter: 2013Q2

REPORT INFORMATION
  Report Type: Spontaneous
  Country: GB (occurrence: GB)
  Receive Date: 20130329
  Receipt Date: 20130424
  Transmission Date: 20140414
  Serious: Yes (Hospitalization, Other)
  Sender: FDA-Public Use
  Company Number: PHHY2013GB029335

PATIENT
  Age: 70 Year
  Sex: Male

DRUGS (13)
  1. MIRTAZAPINE [Suspect]
     Indication: BIPOLAR DISORDER
     Dates: start: 2010, end: 2012
  2. MIRTAZAPINE [Suspect]
     Dates: start: 2012
  3. MIRTAZAPINE [Suspect]
     Dosage: 30 MG, INTERR 2012RES AUTUMN 2012
     Dates: start: 20121231
  4. ABILIFY [Suspect]
     Indication: BIPOLAR DISORDER
     Dosage: 5 MG, QD
     Route: 048
     Dates: start: 201004
  5. ABILIFY [Suspect]
     Dosage: 5 MG, QD INTERR 2012 RES AUTUMN 2012
     Route: 048
     Dates: start: 20121129
  6. OLANZAPINE [Suspect]
     Indication: HYPOMANIA
     Dosage: 7.5 MG, UNK
     Route: 048
     Dates: start: 20120810, end: 20121101
  7. WARFARIN [Concomitant]
     Dosage: 5 MG, UNK
     Dates: start: 201301
  8. BISOPROLOL [Concomitant]
     Dosage: 1.25 MG, UNK
  9. RAMIPRIL [Concomitant]
     Dosage: 2.5 MG, UNK
  10. LEVOTHYROXINE [Concomitant]
     Dosage: 125 UG, UNK
  11. FOLIC ACID [Concomitant]
     Dosage: 5 MG, UNK
  12. LANSOPRAZOLE [Concomitant]
     Dosage: 30 MG, UNK
  13. ATORVASTATIN [Concomitant]
     Dosage: 20 MG, UNK

REACTIONS (2)
  - Embolism venous [Unknown]
  - Drug ineffective [Unknown]
